FAERS Safety Report 4951466-X (Version None)
Quarter: 2006Q1

REPORT INFORMATION
  Report Type: 
  Country: None (occurrence: None)
  Receive Date: 20060317
  Receipt Date: 20060307
  Transmission Date: 20060701
  Serious: Yes (Hospitalization)
  Sender: FDA-Public Use
  Company Number: 05-000585

PATIENT
  Age: 32 Year
  Sex: Female
  Weight: 99.8 kg

DRUGS (3)
  1. FEMRING [Suspect]
     Indication: HORMONE REPLACEMENT THERAPY
     Dosage: 0.1 MG, QD, VAGINAL
     Route: 067
     Dates: start: 20040101
  2. ZYRTEC [Concomitant]
  3. INDERAL [Concomitant]

REACTIONS (8)
  - ACNE [None]
  - DEMYELINATION [None]
  - DRUG INEFFECTIVE [None]
  - HEADACHE [None]
  - HOT FLUSH [None]
  - HYPOAESTHESIA [None]
  - NEUROLOGICAL SYMPTOM [None]
  - UNEVALUABLE EVENT [None]
